FAERS Safety Report 9547787 (Version 1)
Quarter: 2013Q3

REPORT INFORMATION
  Report Type: Spontaneous
  Country: JO (occurrence: None)
  Receive Date: 20130702
  Receipt Date: 20130702
  Transmission Date: 20140515
  Serious: Yes (Death, Hospitalization)
  Sender: FDA-Public Use
  Company Number: 2013-01093

PATIENT
  Age: 40 Year
  Sex: Female

DRUGS (5)
  1. LAMOTRIGINE [Suspect]
     Indication: PSYCHOTIC DISORDER
  2. QUETIAPINE [Suspect]
     Route: 048
  3. VENLAFAXINE [Suspect]
     Indication: PSYCHOTIC DISORDER
  4. MIRTAZAPINE [Suspect]
     Indication: PSYCHOTIC DISORDER
  5. FERROUS SULPHATE [Concomitant]

REACTIONS (6)
  - Cellulitis [None]
  - Oral candidiasis [None]
  - Convulsion [None]
  - Cardiac arrest [None]
  - Septic shock [None]
  - Febrile neutropenia [None]
